FAERS Safety Report 4523249-6 (Version None)
Quarter: 2004Q4

REPORT INFORMATION
  Report Type: 
  Country: None (occurrence: None)
  Receive Date: 20041203
  Receipt Date: 20041117
  Transmission Date: 20050328
  Serious: No
  Sender: FDA-Public Use
  Company Number: CART-10385

PATIENT
  Age: 44 Year
  Sex: Male
  Weight: 195 kg

DRUGS (1)
  1. CARTICEL [Suspect]
     Indication: ARTHROPATHY
     Dosage: 1 NA ONCE IS
     Dates: start: 20010827, end: 20010827

REACTIONS (5)
  - ARTHRALGIA [None]
  - CHONDROMALACIA [None]
  - CHONDROPATHY [None]
  - GRAFT COMPLICATION [None]
  - JOINT SWELLING [None]
